FAERS Safety Report 13343845 (Version 4)
Quarter: 2017Q2

REPORT INFORMATION
  Report Type: Spontaneous
  Country: US (occurrence: US)
  Receive Date: 20170316
  Receipt Date: 20170524
  Transmission Date: 20170830
  Serious: Yes (Hospitalization, Other)
  Sender: FDA-Public Use
  Company Number: US-SAOL THERAPEUTICS-2017SAO00491

PATIENT
  Age: 43 Year
  Sex: Male
  Weight: 78.1 kg

DRUGS (20)
  1. COLACE [Concomitant]
     Active Substance: DOCUSATE SODIUM
  2. SENNA [Concomitant]
     Active Substance: SENNA LEAF\SENNOSIDES\SENNOSIDES A AND B
  3. NIFEDIPINE. [Concomitant]
     Active Substance: NIFEDIPINE
     Dosage: UNK MG, UNK
  4. LIDODERM [Concomitant]
     Active Substance: LIDOCAINE
     Route: 062
  5. MYCOSTATIN [Concomitant]
     Active Substance: NYSTATIN
  6. MULTIVITAMIN [Concomitant]
     Active Substance: VITAMINS
  7. NEURONTIN [Concomitant]
     Active Substance: GABAPENTIN
  8. LIDOCAINE. [Concomitant]
     Active Substance: LIDOCAINE
     Route: 061
  9. MIDODRINE HCL [Concomitant]
     Active Substance: MIDODRINE HYDROCHLORIDE
  10. DIAZEPAM. [Concomitant]
     Active Substance: DIAZEPAM
  11. COMPOUNDED BACLOFEN [Suspect]
     Active Substance: BACLOFEN
     Dosage: UNK
     Route: 037
     Dates: start: 20051130
  12. ACETAMINOPHEN. [Concomitant]
     Active Substance: ACETAMINOPHEN
  13. NITRO-BID [Concomitant]
     Active Substance: NITROGLYCERIN
  14. BISAC-EVAC [Concomitant]
     Active Substance: BISACODYL
  15. BACLOFEN. [Suspect]
     Active Substance: BACLOFEN
     Indication: PAIN
  16. RANITIDINE HCL [Concomitant]
     Active Substance: RANITIDINE HYDROCHLORIDE
  17. BACLOFEN. [Suspect]
     Active Substance: BACLOFEN
     Indication: PAIN
     Dosage: 47.83 ?G, \DAY
     Route: 037
  18. MORPHINE [Suspect]
     Active Substance: MORPHINE
     Dosage: 0.99 MG, \DAY
     Route: 037
  19. INDOMETHACIN. [Concomitant]
     Active Substance: INDOMETHACIN
  20. PROCTOSOL-HC [Concomitant]
     Active Substance: HYDROCORTISONE

REACTIONS (7)
  - Muscle spasticity [Unknown]
  - Thrombosis [Recovered/Resolved]
  - Urostomy complication [Unknown]
  - Off label use [Unknown]
  - Bladder spasm [Recovered/Resolved]
  - Autonomic dysreflexia [Recovered/Resolved]
  - Constipation [Unknown]

NARRATIVE: CASE EVENT DATE: 20170309
